FAERS Safety Report 11784104 (Version 2)
Quarter: 2017Q4

REPORT INFORMATION
  Report Type: Spontaneous
  Country: US (occurrence: US)
  Receive Date: 20151128
  Receipt Date: 20171221
  Transmission Date: 20180320
  Serious: No
  Sender: FDA-Public Use
  Company Number: US-NOVEN PHARMACEUTICALS, INC.-US2015000744

PATIENT
  Age: 49 Year
  Sex: Female

DRUGS (6)
  1. MINIVELLE [Suspect]
     Active Substance: ESTRADIOL
     Indication: HOT FLUSH
     Dosage: 0.0375 MG, UNKNOWN
     Route: 062
     Dates: start: 2014
  2. CLONAZEPAM. [Concomitant]
     Active Substance: CLONAZEPAM
  3. CLOZAPINE. [Concomitant]
     Active Substance: CLOZAPINE
  4. MINIVELLE [Suspect]
     Active Substance: ESTRADIOL
     Indication: NIGHT SWEATS
     Dosage: 0.0375 MG,UNK
     Route: 062
  5. MINIVELLE [Suspect]
     Active Substance: ESTRADIOL
     Dosage: 0.0375 MG,UNK
     Route: 062
  6. CYMBALTA [Concomitant]
     Active Substance: DULOXETINE HYDROCHLORIDE

REACTIONS (3)
  - Product adhesion issue [Unknown]
  - Adverse event [Unknown]
  - Wrong technique in product usage process [Unknown]

NARRATIVE: CASE EVENT DATE: 20150827
